FAERS Safety Report 16787623 (Version 1)
Quarter: 2019Q3

REPORT INFORMATION
  Report Type: Other
  Country: ES (occurrence: ES)
  Receive Date: 20190909
  Receipt Date: 20190909
  Transmission Date: 20191005
  Serious: Yes (Hospitalization)
  Sender: FDA-Public Use
  Company Number: ES-GENUS_LIFESCIENCES-USA-POI0580201900284

PATIENT
  Age: 47 Year
  Sex: Female

DRUGS (2)
  1. GOPRELTO [Suspect]
     Active Substance: COCAINE HYDROCHLORIDE
     Indication: INTENTIONAL PRODUCT MISUSE
     Dates: end: 2018
  2. HEROIN [Suspect]
     Active Substance: DIAMORPHINE
     Indication: INTENTIONAL PRODUCT MISUSE
     Dates: end: 2018

REACTIONS (1)
  - Myelopathy [Not Recovered/Not Resolved]

NARRATIVE: CASE EVENT DATE: 2019
